FAERS Safety Report 18202588 (Version 1)
Quarter: 2020Q3

REPORT INFORMATION
  Report Type: Spontaneous
  Country: LK (occurrence: LK)
  Receive Date: 20200827
  Receipt Date: 20200827
  Transmission Date: 20201103
  Serious: Yes (Hospitalization, Other)
  Sender: FDA-Public Use
  Company Number: LK-HQ-000069

PATIENT
  Age: 32 Year
  Sex: Male

DRUGS (4)
  1. RIFAMPICIN [Concomitant]
     Active Substance: RIFAMPIN
     Indication: ENDOCARDITIS STAPHYLOCOCCAL
     Route: 065
  2. VANCOMYCIN [Concomitant]
     Active Substance: VANCOMYCIN
     Indication: STAPHYLOCOCCAL INFECTION
     Route: 042
  3. LINEZOLID. [Suspect]
     Active Substance: LINEZOLID
     Indication: ENDOCARDITIS STAPHYLOCOCCAL
     Route: 042
  4. NORADRENALINE [Concomitant]
     Active Substance: NOREPINEPHRINE
     Dosage: 0.1 ?G/KG/MIN
     Route: 042

REACTIONS (2)
  - Rhabdomyolysis [Recovered/Resolved]
  - Off label use [Recovered/Resolved]
